FAERS Safety Report 10391426 (Version 1)
Quarter: 2014Q3

REPORT INFORMATION
  Report Type: Report from Study
  Country: US (occurrence: US)
  Receive Date: 20140818
  Receipt Date: 20140818
  Transmission Date: 20150326
  Serious: No
  Sender: FDA-Public Use
  Company Number: US-ALEXION-A201203029

PATIENT
  Sex: Male

DRUGS (2)
  1. SOLIRIS [Suspect]
     Active Substance: ECULIZUMAB
     Dosage: 1500 MG, Q 12 DAYS
     Route: 042
     Dates: start: 20120210
  2. SOLIRIS [Suspect]
     Active Substance: ECULIZUMAB
     Indication: PAROXYSMAL NOCTURNAL HAEMOGLOBINURIA
     Dosage: 1200 MG, Q 12 DAYS
     Route: 042

REACTIONS (3)
  - Haemolysis [Recovering/Resolving]
  - Fatigue [Recovering/Resolving]
  - Dysphagia [Recovering/Resolving]
